FAERS Safety Report 12907015 (Version 1)
Quarter: 2016Q4

REPORT INFORMATION
  Report Type: Spontaneous
  Country: FR (occurrence: FR)
  Receive Date: 20161103
  Receipt Date: 20161103
  Transmission Date: 20170207
  Serious: Yes (Hospitalization)
  Sender: FDA-Public Use
  Company Number: FR-ASTRAZENECA-2016SF14471

PATIENT
  Age: 88 Year
  Sex: Male

DRUGS (4)
  1. LYSANXIA [Suspect]
     Active Substance: PRAZEPAM
     Route: 048
  2. PERMIXON [Suspect]
     Active Substance: SAW PALMETTO
     Dosage: 160 MG
     Route: 065
  3. LERCANIDIPINE [Suspect]
     Active Substance: LERCANIDIPINE
     Route: 048
  4. INEXIUM [Suspect]
     Active Substance: ESOMEPRAZOLE
     Route: 048

REACTIONS (8)
  - Fall [Recovered/Resolved]
  - Inguinal hernia strangulated [Unknown]
  - Interstitial lung disease [Unknown]
  - Blood creatinine increased [Unknown]
  - Cerebral haematoma [Unknown]
  - Orthostatic hypotension [Recovered/Resolved]
  - Azotaemia [Unknown]
  - Oedema peripheral [Unknown]

NARRATIVE: CASE EVENT DATE: 20160817
